FAERS Safety Report 4946736-5 (Version None)
Quarter: 2006Q1

REPORT INFORMATION
  Report Type: 
  Country: None (occurrence: None)
  Receive Date: 20060317
  Receipt Date: 20051019
  Transmission Date: 20060701
  Serious: Yes (Death, Hospitalization)
  Sender: FDA-Public Use
  Company Number: US-MERCK-0510USA08330

PATIENT
  Age: 72 Year
  Sex: Male
  Weight: 63 kg

DRUGS (7)
  1. VIOXX [Suspect]
     Indication: BACK PAIN
     Route: 048
     Dates: start: 20000725, end: 20020808
  2. TYLENOL ARTHRITIS EXTENDED RELIEF [Concomitant]
     Indication: PAIN
     Route: 065
     Dates: start: 20000201, end: 20020808
  3. TYLENOL ARTHRITIS EXTENDED RELIEF [Concomitant]
     Route: 065
     Dates: start: 20000201, end: 20020808
  4. ALBUTEROL [Concomitant]
     Indication: DYSPNOEA
     Route: 065
  5. IPRATROPIUM BROMIDE [Concomitant]
     Indication: DYSPNOEA
     Route: 065
  6. PREDNISONE [Concomitant]
     Indication: DYSPNOEA
     Route: 065
  7. THEOPHYLLINE [Concomitant]
     Indication: DYSPNOEA
     Route: 065

REACTIONS (10)
  - ACUTE MYOCARDIAL INFARCTION [None]
  - ANXIETY [None]
  - CATARACT [None]
  - DEPRESSED LEVEL OF CONSCIOUSNESS [None]
  - DIZZINESS [None]
  - DYSPNOEA [None]
  - MYOCARDIAL INFARCTION [None]
  - PANIC ATTACK [None]
  - PNEUMONIA [None]
  - STOMACH DISCOMFORT [None]
